FAERS Safety Report 4786634-3 (Version None)
Quarter: 2005Q3

REPORT INFORMATION
  Report Type: 
  Country: None (occurrence: None)
  Receive Date: 20050927
  Receipt Date: 20050713
  Transmission Date: 20060218
  Serious: No
  Sender: FDA-Public Use
  Company Number: USA0507102733

PATIENT
  Age: 8 Year
  Sex: Male
  Weight: 25 kg

DRUGS (3)
  1. STRATTERA [Suspect]
     Indication: ATTENTION DEFICIT/HYPERACTIVITY DISORDER
     Dosage: 18 MG DAY
     Dates: start: 20050707
  2. SINGULAIR (MONTELUKAST      /01362601/) [Concomitant]
  3. ALBUTEROL [Concomitant]

REACTIONS (3)
  - CRYING [None]
  - EMOTIONAL DISTRESS [None]
  - IRRITABILITY [None]
